FAERS Safety Report 5480239-7 (Version None)
Quarter: 2007Q4

REPORT INFORMATION
  Report Type: 
  Country: None (occurrence: None)
  Receive Date: 20071009
  Receipt Date: 20071005
  Transmission Date: 20080405
  Serious: Yes (Hospitalization)
  Sender: FDA-Public Use
  Company Number: FR-WYE-G00432707

PATIENT
  Sex: Female
  Weight: 30 kg

DRUGS (4)
  1. ADVIL ENFANTS ET NOURRISSONS [Suspect]
     Indication: NASOPHARYNGITIS
     Dosage: UNKNOWN
     Route: 048
     Dates: start: 20070616, end: 20070621
  2. ADVIL ENFANTS ET NOURRISSONS [Suspect]
     Indication: VIRAL INFECTION
  3. ACETAMINOPHEN [Concomitant]
     Indication: NASOPHARYNGITIS
     Dosage: UNKNOWN
     Route: 048
     Dates: start: 20070616
  4. ACETAMINOPHEN [Concomitant]
     Indication: VIRAL INFECTION

REACTIONS (2)
  - C-REACTIVE PROTEIN INCREASED [None]
  - GASTRIC ULCER HAEMORRHAGE [None]
